FAERS Safety Report 9041543 (Version 1)
Quarter: 2013Q1

REPORT INFORMATION
  Report Type: Report from Study
  Country: US (occurrence: US)
  Receive Date: 20130129
  Receipt Date: 20130129
  Transmission Date: 20140127
  Serious: No
  Sender: FDA-Public Use
  Company Number: US-ABBOTT-12P-163-0900065-00

PATIENT
  Age: 51 Year
  Sex: Female

DRUGS (24)
  1. HUMIRA 40 MG/0.8 ML PEN [Suspect]
     Indication: CROHN^S DISEASE
     Dates: start: 20111103, end: 20120113
  2. BACLOFEN [Concomitant]
     Indication: BACK PAIN
     Dosage: PUMP- DAILY
  3. CLONIDINE [Concomitant]
     Indication: BACK PAIN
     Dosage: 444 46.99 MCG: PUMP- DAILY
  4. CRANBERRY [Concomitant]
     Indication: PROPHYLAXIS URINARY TRACT INFECTION
  5. FISH OIL [Concomitant]
     Indication: PRODUCT USED FOR UNKNOWN INDICATION
  6. GLUCOSAMINE + CHONDROITIN [Concomitant]
     Indication: PRODUCT USED FOR UNKNOWN INDICATION
  7. LEVSIN [Concomitant]
     Indication: PRODUCT USED FOR UNKNOWN INDICATION
  8. IMURAN [Concomitant]
     Indication: CROHN^S DISEASE
     Dosage: DAILY
  9. IMURAN [Concomitant]
     Indication: COLITIS
  10. LASIX [Concomitant]
     Indication: PRODUCT USED FOR UNKNOWN INDICATION
  11. LISINOPRIL [Concomitant]
     Indication: BLOOD PRESSURE
     Dosage: DAILY
  12. MORPHINE [Concomitant]
     Indication: BACK PAIN
     Dosage: PUMP- DAILY
  13. MULTIPLE VITAMINS [Concomitant]
     Indication: VITAMIN SUPPLEMENTATION
     Dosage: DAILY
  14. OMEPRAZOLE [Concomitant]
     Indication: DYSPEPSIA
     Dosage: DAILY
  15. POTASSIUM [Concomitant]
     Indication: MUSCLE SPASMS
  16. PROZAC [Concomitant]
     Indication: DEPRESSION
     Dosage: DAILY
  17. TOPROL [Concomitant]
     Indication: HYPERTENSION
     Dosage: DAILY
     Dates: start: 20120130
  18. VITAMIN B [Concomitant]
     Indication: VITAMIN SUPPLEMENTATION
     Dosage: DAILY
  19. VITAMIN E [Concomitant]
     Indication: PRODUCT USED FOR UNKNOWN INDICATION
     Dosage: DAILY
  20. PRAVASTAIN [Concomitant]
     Indication: BLOOD CHOLESTEROL INCREASED
     Dosage: DAILY
  21. ASPIRIN [Concomitant]
     Indication: PRODUCT USED FOR UNKNOWN INDICATION
  22. ANTIHISTAMINE [Concomitant]
     Indication: HYPERSENSITIVITY
     Dosage: DAILY
  23. HYOSCYAMINE [Concomitant]
     Indication: NAUSEA
  24. HYDROCODONE [Concomitant]
     Indication: PAIN
     Dosage: PRN Q 6 HOURS

REACTIONS (7)
  - Sinusitis [Recovering/Resolving]
  - Muscle spasms [Recovering/Resolving]
  - Oropharyngeal pain [Recovering/Resolving]
  - Ear pain [Recovering/Resolving]
  - Pyrexia [Recovering/Resolving]
  - Chills [Recovering/Resolving]
  - Blepharospasm [Recovering/Resolving]
